FAERS Safety Report 13243622 (Version 2)
Quarter: 2017Q1

REPORT INFORMATION
  Report Type: Report from Study
  Country: MX (occurrence: MX)
  Receive Date: 20170217
  Receipt Date: 20170223
  Transmission Date: 20170428
  Serious: Yes (Other)
  Sender: FDA-Public Use
  Company Number: PHHY2017MX024445

PATIENT
  Age: 74 Year
  Sex: Female
  Weight: 55 kg

DRUGS (4)
  1. CHLOROQUINE. [Concomitant]
     Active Substance: CHLOROQUINE
     Indication: SCLERODERMA
     Dosage: 1 DF, QD (10 YEARS AGO)
     Route: 048
  2. METHOTREXATE. [Concomitant]
     Active Substance: METHOTREXATE
     Indication: SCLERODERMA
     Dosage: (4 TABLETS ON THURSDAY AND 3 TABLETS ON FRIDAY) (8 YEARS AGO)
     Route: 048
  3. EXFORGE HCT [Suspect]
     Active Substance: AMLODIPINE BESYLATE\HYDROCHLOROTHIAZIDE\VALSARTAN
     Indication: HYPERTENSION
     Dosage: 1 DF (AMLODIPINE 10 MG AND HYDROCHLOROTHIAZIDE 25 MG AND VALSARTAN 320 MG), QD (2 YEARS AGO)
     Route: 048
  4. PREDNISONE. [Concomitant]
     Active Substance: PREDNISONE
     Indication: SCLERODERMA
     Dosage: 1 DF, (IN THE MORNING AND AT NIGHT) (8 YEARS AGO)
     Route: 048

REACTIONS (3)
  - Mobility decreased [Unknown]
  - Blood pressure decreased [Recovered/Resolved]
  - Fall [Recovered/Resolved]

NARRATIVE: CASE EVENT DATE: 20170129
